FAERS Safety Report 6428694-X (Version None)
Quarter: 2009Q4

REPORT INFORMATION
  Report Type: 
  Country: None (occurrence: None)
  Receive Date: 20091103
  Receipt Date: 20091026
  Transmission Date: 20100525
  Serious: Yes (Hospitalization)
  Sender: FDA-Public Use
  Company Number: TPA2009A03410

PATIENT
  Sex: Male

DRUGS (2)
  1. ACTOS [Suspect]
     Indication: TYPE 2 DIABETES MELLITUS
  2. GLIMEPIRIDE [Suspect]
     Indication: TYPE 2 DIABETES MELLITUS
     Dosage: 6 MG, 1 IN 1 D, PER ORAL
     Route: 048
     Dates: end: 20090911

REACTIONS (5)
  - BLISTER [None]
  - FLUID RETENTION [None]
  - SKIN ULCER [None]
  - SUNBURN [None]
  - WEIGHT INCREASED [None]
